FAERS Safety Report 25229177 (Version 2)
Quarter: 2025Q2

REPORT INFORMATION
  Report Type: Spontaneous
  Country: FR (occurrence: FR)
  Receive Date: 20250423
  Receipt Date: 20250424
  Transmission Date: 20250717
  Serious: Yes (Other)
  Sender: BIOVITRUM
  Company Number: None

PATIENT
  Age: 25 Year
  Sex: Female
  Weight: 58 kg

DRUGS (3)
  1. KINERET [Suspect]
     Active Substance: ANAKINRA
     Indication: Still^s disease
     Dates: start: 2013, end: 202303
  2. KINERET [Suspect]
     Active Substance: ANAKINRA
     Dates: start: 202303, end: 20240925
  3. KINERET [Suspect]
     Active Substance: ANAKINRA
     Dates: start: 20240925

REACTIONS (1)
  - Graves^ disease [Not Recovered/Not Resolved]

NARRATIVE: CASE EVENT DATE: 20240919
